FAERS Safety Report 7228011-1 (Version None)
Quarter: 2011Q1

REPORT INFORMATION
  Report Type: 
  Country: None (occurrence: None)
  Receive Date: 20110114
  Receipt Date: 20110110
  Transmission Date: 20110831
  Serious: Yes (Hospitalization, Other)
  Sender: FDA-Public Use
  Company Number: US-ALEXION-A201001557

PATIENT
  Sex: Female

DRUGS (3)
  1. VITAMIN B12                        /00056201/ [Concomitant]
     Dosage: 1, Q MONTH
     Route: 030
  2. SOLIRIS [Suspect]
     Indication: PAROXYSMAL NOCTURNAL HAEMOGLOBINURIA
     Dosage: UNK
     Route: 042
  3. ANTIBIOTICS [Suspect]
     Indication: DEVICE RELATED INFECTION

REACTIONS (8)
  - SWELLING FACE [None]
  - DEVICE RELATED INFECTION [None]
  - DYSPNOEA [None]
  - PULMONARY OEDEMA [None]
  - HAEMOGLOBIN DECREASED [None]
  - PRURITUS GENERALISED [None]
  - INFLUENZA [None]
  - ADVERSE DRUG REACTION [None]
